FAERS Safety Report 17549669 (Version 1)
Quarter: 2020Q1

REPORT INFORMATION
  Report Type: Spontaneous
  Country: DE (occurrence: DE)
  Receive Date: 20200317
  Receipt Date: 20200317
  Transmission Date: 20200409
  Serious: Yes (Other)
  Sender: FDA-Public Use
  Company Number: NVSC2020DE071881

PATIENT
  Sex: Female

DRUGS (1)
  1. LEVOFLOXACIN - 1 A PHARMA 500 MG FILMTABLETTEN [Suspect]
     Active Substance: LEVOFLOXACIN
     Indication: PRODUCT USED FOR UNKNOWN INDICATION
     Dosage: UNK (?BER 4 TAGE, INSGESAMT 15 TABLETTEN)
     Route: 065

REACTIONS (6)
  - Oedema peripheral [Unknown]
  - Tendon discomfort [Unknown]
  - Gait disturbance [Not Recovered/Not Resolved]
  - Pain in extremity [Not Recovered/Not Resolved]
  - Aortic valve incompetence [Unknown]
  - Hypersensitivity [Unknown]

NARRATIVE: CASE EVENT DATE: 20160414
